FAERS Safety Report 7388727-3 (Version None)
Quarter: 2011Q2

REPORT INFORMATION
  Report Type: 
  Country: None (occurrence: None)
  Receive Date: 20110401
  Receipt Date: 20110323
  Transmission Date: 20111010
  Serious: Yes (Hospitalization)
  Sender: FDA-Public Use
  Company Number: JP-BAYER-200912928BYL

PATIENT
  Sex: Male
  Weight: 58 kg

DRUGS (18)
  1. NEXAVAR [Suspect]
     Route: 048
     Dates: start: 20091205, end: 20100702
  2. GASTROM [Concomitant]
     Indication: GASTRITIS PROPHYLAXIS
     Dosage: BEFORE NEXAVAR ADMINISTRATION
     Route: 048
  3. MYONAL [Concomitant]
     Dosage: BEFORE NEXAVAR ADMINISTRATION
     Route: 048
  4. NORVASC [Concomitant]
     Dosage: BEFORE NEXAVAR ADMINISTRATION
     Route: 048
  5. PERDIPINE-LA [Concomitant]
     Dosage: BEFORE NEXAVAR ADMINISTRATION
     Route: 048
  6. KAMAG G [Concomitant]
     Dosage: BEFORE NEXAVAR ADMINISTRATION
     Route: 048
  7. GLYBURIDE [Concomitant]
     Dosage: BEFORE NEXAVAR ADMINISTRATION
     Route: 048
  8. LASIX [Concomitant]
     Dosage: BEFORE NEXAVAR ADMINISTRATION
     Route: 048
  9. PANALDINE [Concomitant]
     Indication: CEREBROVASCULAR ACCIDENT PROPHYLAXIS
     Dosage: BEFORE NEXAVAR ADMINISTRATION
     Route: 048
  10. NEXAVAR [Suspect]
     Indication: HEPATIC NEOPLASM MALIGNANT
     Dosage: 400 MG, BID
     Route: 048
     Dates: start: 20090704, end: 20090731
  11. NEXAVAR [Suspect]
     Dosage: 400 MG, QD
     Route: 048
     Dates: start: 20090822, end: 20091030
  12. TANATRIL [Concomitant]
     Dosage: BEFORE NEXAVAR ADMINISTRATION
     Route: 048
  13. TENORMIN [Concomitant]
     Dosage: BEFORE NEXAVAR ADMINISTRATION
     Route: 048
  14. ALDACTONE [Concomitant]
     Dosage: BEFORE NEXAVAR ADMINISTRATION
     Route: 048
  15. NEXAVAR [Suspect]
     Route: 048
     Dates: start: 20100906
  16. FERROUS CITRATE [Concomitant]
     Dosage: BEFORE NEXAVAR ADMINISTRATION
     Route: 048
  17. NEXAVAR [Suspect]
     Route: 048
     Dates: start: 20100726, end: 20100826
  18. DOXAZOSIN MESYLATE [Concomitant]
     Dosage: BEFORE NEXAVAR ADMINISTRATION
     Route: 048

REACTIONS (13)
  - DECREASED APPETITE [None]
  - DIARRHOEA [None]
  - FATIGUE [None]
  - BLOOD UREA INCREASED [None]
  - ASCITES [None]
  - CEREBRAL INFARCTION [None]
  - MALAISE [None]
  - OEDEMA PERIPHERAL [None]
  - HAEMOGLOBIN DECREASED [None]
  - DYSPHONIA [None]
  - PALMAR-PLANTAR ERYTHRODYSAESTHESIA SYNDROME [None]
  - PLATELET COUNT DECREASED [None]
  - DIZZINESS [None]
